FAERS Safety Report 8478781-X (Version None)
Quarter: 2012Q2

REPORT INFORMATION
  Report Type: 
  Country: None (occurrence: None)
  Receive Date: 20120629
  Receipt Date: 20120627
  Transmission Date: 20120825
  Serious: Yes (Death)
  Sender: FDA-Public Use
  Company Number: US-CELGENEUS-163-21880-12011816

PATIENT
  Sex: Male

DRUGS (3)
  1. REVLIMID [Suspect]
     Indication: MULTIPLE MYELOMA
     Dosage: 5 MILLIGRAM
     Route: 048
     Dates: start: 20111102
  2. LANTUS [Concomitant]
     Route: 050
  3. NOVOLOG MIX 70/30 [Concomitant]
     Dosage: 70/30
     Route: 050

REACTIONS (1)
  - DEATH [None]
